FAERS Safety Report 6017109-1 (Version None)
Quarter: 2008Q4

REPORT INFORMATION
  Report Type: 
  Country: None (occurrence: None)
  Receive Date: 20081223
  Receipt Date: 20081217
  Transmission Date: 20090506
  Serious: Yes (Hospitalization)
  Sender: FDA-Public Use
  Company Number: AU-WYE-H07258608

PATIENT
  Age: 47 Year
  Sex: Female
  Weight: 70 kg

DRUGS (3)
  1. VENLAFAXINE HYDROCHLORIDE [Suspect]
     Dosage: 53X150 MG (7.95 G) (OVERDOSE AMOUNT)
     Route: 048
  2. IBUPROFEN [Suspect]
     Dosage: 12X200 MG (2.4 G) (OVERDOSE AMOUNT)
     Route: 048
  3. VALPROATE SODIUM [Suspect]
     Dosage: 190X200 MG (38 G) (OVERDOSE AMOUNT)
     Route: 048

REACTIONS (9)
  - AMMONIA INCREASED [None]
  - BLOOD PRESSURE SYSTOLIC DECREASED [None]
  - CLONUS [None]
  - DRUG TOXICITY [None]
  - GLASGOW COMA SCALE ABNORMAL [None]
  - HYPERREFLEXIA [None]
  - ILEUS [None]
  - OVERDOSE [None]
  - SINUS TACHYCARDIA [None]
